FAERS Safety Report 22199805 (Version 2)
Quarter: 2023Q2

REPORT INFORMATION
  Report Type: Report from Study
  Country: CA (occurrence: CA)
  Receive Date: 20230412
  Receipt Date: 20230421
  Transmission Date: 20230721
  Serious: Yes (Hospitalization)
  Sender: FDA-Public Use
  Company Number: CA-JNJFOC-A-CH2020-205882

PATIENT
  Age: 78 Year
  Sex: Female
  Weight: 72 kg

DRUGS (12)
  1. OPSUMIT [Suspect]
     Active Substance: MACITENTAN
     Indication: Pulmonary arterial hypertension
     Dosage: 10 MG, QD
     Route: 048
     Dates: start: 20200213
  2. AMBRISENTAN [Suspect]
     Active Substance: AMBRISENTAN
     Indication: Pulmonary arterial hypertension
     Dosage: 5 MG, QD
     Route: 048
     Dates: start: 20191022, end: 20191104
  3. AMBRISENTAN [Suspect]
     Active Substance: AMBRISENTAN
     Dosage: 10 MG, QD
     Route: 048
     Dates: start: 20191105, end: 20200107
  4. ADCIRCA [Concomitant]
     Active Substance: TADALAFIL
     Indication: Pulmonary arterial hypertension
     Dosage: 40 UNK, QD
     Route: 048
     Dates: start: 20190807
  5. MYCOPHENOLIC ACID [Concomitant]
     Active Substance: MYCOPHENOLIC ACID
     Indication: Interstitial lung disease
     Route: 048
     Dates: start: 202205
  6. OMEPRAZOLE [Concomitant]
     Active Substance: OMEPRAZOLE
     Indication: Gastrooesophageal reflux disease
     Route: 048
  7. SYNTHROID [Concomitant]
     Active Substance: LEVOTHYROXINE SODIUM
     Indication: Hypothyroidism
     Route: 048
  8. HYDROXYCHLOROQUINE [Concomitant]
     Active Substance: HYDROXYCHLOROQUINE
     Indication: Systemic scleroderma
     Route: 048
  9. FLECAINIDE [Concomitant]
     Active Substance: FLECAINIDE
     Indication: Atrial fibrillation
     Route: 048
  10. DILTIAZEM [Concomitant]
     Active Substance: DILTIAZEM
     Indication: Atrial fibrillation
     Route: 048
  11. VITAMIN D3 [Concomitant]
     Active Substance: CHOLECALCIFEROL
     Indication: Nutritional supplementation
     Route: 048
  12. APIXABAN [Concomitant]
     Active Substance: APIXABAN
     Indication: Prophylaxis
     Route: 048

REACTIONS (6)
  - Right ventricular failure [Recovered/Resolved]
  - Oedema peripheral [Unknown]
  - Weight increased [Unknown]
  - Diarrhoea [Recovered/Resolved]
  - Epistaxis [Recovered/Resolved]
  - Fall [Recovered/Resolved]

NARRATIVE: CASE EVENT DATE: 20200818
